FAERS Safety Report 5905809-0 (Version None)
Quarter: 2008Q4

REPORT INFORMATION
  Report Type: 
  Country: None (occurrence: None)
  Receive Date: 20081002
  Receipt Date: 20080924
  Transmission Date: 20090506
  Serious: Yes (Life-Threatening)
  Sender: FDA-Public Use
  Company Number: B0537168A

PATIENT
  Age: 34 Year
  Sex: Female
  Weight: 50 kg

DRUGS (1)
  1. ARIXTRA [Suspect]
     Indication: ANTIPHOSPHOLIPID SYNDROME
     Dosage: 7.5MG PER DAY
     Route: 058
     Dates: start: 20080101

REACTIONS (4)
  - ABORTION [None]
  - COMPLICATION OF PREGNANCY [None]
  - DRUG EXPOSURE DURING PREGNANCY [None]
  - UTERINE HAEMORRHAGE [None]
